FAERS Safety Report 6611110-2 (Version None)
Quarter: 2010Q1

REPORT INFORMATION
  Report Type: 
  Country: None (occurrence: None)
  Receive Date: 20100303
  Receipt Date: 20100301
  Transmission Date: 20100710
  Serious: Yes (Other)
  Sender: FDA-Public Use
  Company Number: US-ASTRAZENECA-2009SE08646

PATIENT
  Age: 36 Year
  Sex: Female
  Weight: 159.2 kg

DRUGS (18)
  1. SEROQUEL [Suspect]
     Indication: DEPRESSION
     Dosage: 25 MG THREE TIMES AND 300MG DAILY
     Route: 048
     Dates: start: 20060101, end: 20070101
  2. ABILIFY [Concomitant]
     Dates: start: 19980101, end: 20000101
  3. GEODON [Concomitant]
     Dates: start: 20090101, end: 20090701
  4. RISPERDAL [Concomitant]
     Indication: SCHIZOPHRENIA
     Dates: start: 20080101
  5. RISPERDAL [Concomitant]
     Indication: BIPOLAR DISORDER
     Dates: start: 20080101
  6. RISPERDAL [Concomitant]
     Indication: DEPRESSION
     Dates: start: 20080101
  7. ZYPREXA [Concomitant]
     Dates: start: 19990101, end: 20000101
  8. WELLBUTRIN XL [Concomitant]
     Indication: SCHIZOPHRENIA
  9. WELLBUTRIN XL [Concomitant]
     Indication: BIPOLAR DISORDER
  10. WELLBUTRIN XL [Concomitant]
     Indication: DEPRESSION
  11. LOXITANE [Concomitant]
     Indication: SCHIZOPHRENIA
  12. LOXITANE [Concomitant]
     Indication: BIPOLAR DISORDER
  13. LOXITANE [Concomitant]
     Indication: DEPRESSION
  14. COGENTIN [Concomitant]
     Indication: SCHIZOPHRENIA
  15. COGENTIN [Concomitant]
     Indication: BIPOLAR DISORDER
  16. COGENTIN [Concomitant]
     Indication: DEPRESSION
  17. METFORMIN HYDROCHLORIDE [Concomitant]
     Indication: TYPE 2 DIABETES MELLITUS
  18. METFORMIN HYDROCHLORIDE [Concomitant]
     Indication: GLYCOSURIA

REACTIONS (7)
  - BACK DISORDER [None]
  - CEREBROVASCULAR ACCIDENT [None]
  - HYPOAESTHESIA [None]
  - OBESITY [None]
  - TRANSIENT ISCHAEMIC ATTACK [None]
  - TYPE 2 DIABETES MELLITUS [None]
  - WEIGHT INCREASED [None]
